FAERS Safety Report 8767469 (Version 1)
Quarter: 2012Q4

REPORT INFORMATION
  Report Type: 
  Country: US (occurrence: US)
  Receive Date: 20120904
  Receipt Date: 20120904
  Transmission Date: 20130627
  Serious: Yes (Other)
  Sender: FDA-Public Use
  Company Number: PHEH2012US017176

PATIENT
  Age: 80 Year
  Sex: Male

DRUGS (5)
  1. EXELON [Suspect]
     Indication: DEMENTIA ALZHEIMER^S TYPE
     Dates: end: 20120814
  2. NAMENDA [Suspect]
     Indication: DEMENTIA ALZHEIMER^S TYPE
     Dates: start: 2011, end: 20120814
  3. KLONOPIN [Concomitant]
     Dosage: UNK UKN, PRN
  4. FISH OIL [Concomitant]
  5. BABY ASPIRIN [Concomitant]
     Dosage: 81 mg, QD

REACTIONS (4)
  - Feeling abnormal [Not Recovered/Not Resolved]
  - Anger [Not Recovered/Not Resolved]
  - Agitation [Not Recovered/Not Resolved]
  - Confusional state [Not Recovered/Not Resolved]
